FAERS Safety Report 19171638 (Version 1)
Quarter: 2021Q2

REPORT INFORMATION
  Report Type: Spontaneous
  Country: US (occurrence: US)
  Receive Date: 20210423
  Receipt Date: 20210423
  Transmission Date: 20210717
  Serious: No
  Sender: FDA-Public Use
  Company Number: US-SA-2021SA133275

PATIENT
  Sex: Male

DRUGS (1)
  1. DUPIXENT [Suspect]
     Active Substance: DUPILUMAB
     Indication: DERMATITIS ATOPIC
     Dosage: 300 MG, QOW
     Route: 058
     Dates: start: 202012

REACTIONS (10)
  - Condition aggravated [Unknown]
  - Cough [Unknown]
  - Skin ulcer [Unknown]
  - Erythema [Unknown]
  - Chronic obstructive pulmonary disease [Unknown]
  - Accident [Unknown]
  - Skin discolouration [Unknown]
  - Cyst [Unknown]
  - Nodule [Unknown]
  - Pruritus [Unknown]
